FAERS Safety Report 6742287-6 (Version None)
Quarter: 2010Q2

REPORT INFORMATION
  Report Type: 
  Country: None (occurrence: None)
  Receive Date: 20100526
  Receipt Date: 20100517
  Transmission Date: 20101027
  Serious: Yes (Other)
  Sender: FDA-Public Use
  Company Number: US-ASTRAZENECA-2010SE22355

PATIENT
  Age: 67 Year
  Sex: Female

DRUGS (3)
  1. FASLODEX [Suspect]
     Indication: RECURRENT CANCER
     Route: 030
     Dates: start: 20080101
  2. COUMADIN [Concomitant]
  3. ZOMETA [Concomitant]

REACTIONS (5)
  - BONE NEOPLASM MALIGNANT [None]
  - BONE PAIN [None]
  - DYSPNOEA [None]
  - HOT FLUSH [None]
  - HYPOAESTHESIA [None]
